FAERS Safety Report 9897110 (Version 1)
Quarter: 2014Q1

REPORT INFORMATION
  Report Type: Spontaneous
  Country: US (occurrence: US)
  Receive Date: 20140214
  Receipt Date: 20140214
  Transmission Date: 20141002
  Serious: No
  Sender: FDA-Public Use
  Company Number: US-009507513-1401USA014472

PATIENT
  Sex: Female

DRUGS (1)
  1. COZAAR [Suspect]
     Indication: HYPERTENSION
     Dosage: 25 MG,DAILY
     Route: 048
     Dates: start: 20121216

REACTIONS (1)
  - Renal impairment [Not Recovered/Not Resolved]
